FAERS Safety Report 10451548 (Version 2)
Quarter: 2014Q3

REPORT INFORMATION
  Report Type: Report from Study
  Country: JP (occurrence: JP)
  Receive Date: 20140913
  Receipt Date: 20140913
  Transmission Date: 20150326
  Serious: Yes (Other)
  Sender: FDA-Public Use
  Company Number: JP-IPSEN BIOPHARMACEUTICALS, INC.-2014-3808

PATIENT
  Age: 70 Year
  Sex: Male
  Weight: 42 kg

DRUGS (14)
  1. DERMOVATE 0.05% [Concomitant]
     Indication: PRURITUS
     Dosage: NOT REPORTED
     Route: 065
  2. RINDERON-VG 0.12% [Concomitant]
     Indication: PRURITUS
     Dosage: NOT REPORTED
     Route: 065
  3. SOMATULINE AUTOGEL [Suspect]
     Active Substance: LANREOTIDE ACETATE
     Indication: PANCREATIC NEUROENDOCRINE TUMOUR
     Dosage: 120 MG
     Route: 058
     Dates: start: 20140310
  4. PARIET [Concomitant]
     Active Substance: RABEPRAZOLE SODIUM
     Indication: GASTROOESOPHAGEAL REFLUX DISEASE
     Route: 048
  5. LIVACT [Concomitant]
     Indication: HYPOALBUMINAEMIA
     Route: 048
  6. LAC-B [Concomitant]
     Active Substance: BIFIDOBACTERIUM SPP.
     Indication: DIARRHOEA
     Route: 048
  7. BFUID [Concomitant]
     Indication: NUTRITIONAL SUPPLEMENTATION
     Route: 041
     Dates: start: 20140611
  8. MONILAC [Concomitant]
     Active Substance: LACTULOSE
     Indication: HEPATIC ENCEPHALOPATHY PROPHYLAXIS
     Route: 048
  9. MAGLAX [Concomitant]
     Active Substance: MAGNESIUM OXIDE
     Indication: CONSTIPATION
     Route: 048
     Dates: start: 20140612
  10. HIRUDOID [Concomitant]
     Active Substance: GLYCOSAMINOGLYCANS
     Indication: PRURITUS
     Dosage: NOT REPORTED
     Route: 065
  11. LIDOMEX CREAM 0.3% [Concomitant]
     Indication: PRURITUS
     Dosage: NOT REPORTED
     Route: 065
  12. GASMOTIN [Concomitant]
     Active Substance: MOSAPRIDE CITRATE
     Indication: GASTROOESOPHAGEAL REFLUX DISEASE
     Route: 048
  13. TSUMURA RIKKUNSHITO EXTRACT GRANULES [Concomitant]
     Indication: GASTROOESOPHAGEAL REFLUX DISEASE
     Route: 048
  14. INTRALIPOS 10% [Concomitant]
     Indication: NUTRITIONAL SUPPLEMENTATION
     Route: 041
     Dates: start: 20140612

REACTIONS (1)
  - Pyrexia [Recovered/Resolved]

NARRATIVE: CASE EVENT DATE: 20140708
